FAERS Safety Report 7716297-6 (Version None)
Quarter: 2011Q3

REPORT INFORMATION
  Report Type: 
  Country: None (occurrence: None)
  Receive Date: 20110829
  Receipt Date: 20110816
  Transmission Date: 20111222
  Serious: Yes (Other)
  Sender: FDA-Public Use
  Company Number: PHHO2009CH06466

PATIENT
  Sex: Female
  Weight: 58 kg

DRUGS (1)
  1. GILENYA [Suspect]
     Indication: MULTIPLE SCLEROSIS
     Dosage: 1.25 MG, UNK
     Route: 048
     Dates: start: 20040907, end: 20090525

REACTIONS (6)
  - SKIN HYPERPIGMENTATION [None]
  - MALIGNANT MELANOMA [None]
  - SKIN NEOPLASM EXCISION [None]
  - PARAKERATOSIS [None]
  - MELANOCYTIC NAEVUS [None]
  - FIBROSIS [None]
